FAERS Safety Report 16400071 (Version 1)
Quarter: 2019Q2

REPORT INFORMATION
  Report Type: Spontaneous
  Country: US (occurrence: US)
  Receive Date: 20190606
  Receipt Date: 20190606
  Transmission Date: 20190711
  Serious: No
  Sender: FDA-Public Use
  Company Number: US-ALLERGAN-1857626US

PATIENT

DRUGS (2)
  1. SKIN MARKING GRID (DEVICE) [Suspect]
     Active Substance: DEVICE
     Indication: PRODUCT USED FOR UNKNOWN INDICATION
     Dates: start: 20181130, end: 20181130
  2. KYBELLA [Suspect]
     Active Substance: DEOXYCHOLIC ACID
     Indication: PRODUCT USED FOR UNKNOWN INDICATION
     Dosage: , SINGLE
     Route: 058
     Dates: start: 20181130, end: 20181130

REACTIONS (2)
  - Pain in jaw [Unknown]
  - Oropharyngeal pain [Recovering/Resolving]
